FAERS Safety Report 5584559-7 (Version None)
Quarter: 2008Q1

REPORT INFORMATION
  Report Type: 
  Country: None (occurrence: None)
  Receive Date: 20080103
  Receipt Date: 20071221
  Transmission Date: 20080703
  Serious: Yes (Hospitalization)
  Sender: FDA-Public Use
  Company Number: CHNY2007FR04092

PATIENT
  Age: 45 Year

DRUGS (4)
  1. NICOTINE [Suspect]
     Indication: SMOKING CESSATION THERAPY
     Dosage: 21 MG,QD,TRANSDERMAL
     Route: 062
     Dates: start: 20071130, end: 20071217
  2. NICOTINE [Suspect]
     Indication: SMOKING CESSATION THERAPY
     Dosage: 21 MG,QD,TRANSDERMAL
     Route: 062
     Dates: start: 20071113
  3. CEFUROXIME AXETIL [Concomitant]
  4. PREDNISOLONE [Concomitant]

REACTIONS (5)
  - ANGIOEDEMA [None]
  - EYELID OEDEMA [None]
  - GENERALISED OEDEMA [None]
  - PRURITUS GENERALISED [None]
  - PYREXIA [None]
